FAERS Safety Report 8520149-1 (Version None)
Quarter: 2012Q3

REPORT INFORMATION
  Report Type: 
  Country: None (occurrence: None)
  Receive Date: 20120719
  Receipt Date: 20120710
  Transmission Date: 20120928
  Serious: Yes (Hospitalization)
  Sender: FDA-Public Use
  Company Number: US-JNJFOC-20120705851

PATIENT
  Sex: Female

DRUGS (1)
  1. EXTRA STRENGTH TYLENOL [Suspect]
     Indication: PAIN
     Route: 065
     Dates: start: 20120601

REACTIONS (4)
  - NAUSEA [None]
  - DRUG INEFFECTIVE [None]
  - FALL [None]
  - FATIGUE [None]
